FAERS Safety Report 8458434-4 (Version None)
Quarter: 2012Q2

REPORT INFORMATION
  Report Type: 
  Country: None (occurrence: None)
  Receive Date: 20120622
  Receipt Date: 20120612
  Transmission Date: 20120825
  Serious: Yes (Hospitalization)
  Sender: FDA-Public Use
  Company Number: FR-ABBOTT-12P-056-0946746-00

PATIENT
  Sex: Female

DRUGS (5)
  1. PUREGON [Suspect]
     Route: 058
     Dates: start: 20110402, end: 20110406
  2. PUREGON [Suspect]
     Route: 058
     Dates: start: 20110407, end: 20110407
  3. GONADOTROPHINE CHORIONIQUE ENDO [Suspect]
     Indication: IN VITRO FERTILISATION
     Route: 030
     Dates: start: 20110408
  4. PUREGON [Suspect]
     Indication: IN VITRO FERTILISATION
     Route: 058
     Dates: start: 20110329, end: 20110401
  5. LEUPROLIDE ACETATE [Suspect]
     Indication: IN VITRO FERTILISATION
     Route: 058
     Dates: start: 20110329

REACTIONS (2)
  - OVARIAN HYPERSTIMULATION SYNDROME [None]
  - ASCITES [None]
